FAERS Safety Report 12320068 (Version 1)
Quarter: 2016Q2

REPORT INFORMATION
  Report Type: Spontaneous
  Country: US (occurrence: US)
  Receive Date: 20160429
  Receipt Date: 20160429
  Transmission Date: 20160815
  Serious: No
  Sender: FDA-Public Use
  Company Number: US-ROCHE-1612480

PATIENT
  Sex: Female

DRUGS (2)
  1. ENTYVIO [Concomitant]
     Active Substance: VEDOLIZUMAB
     Route: 065
  2. VALGANCICLOVIR. [Suspect]
     Active Substance: VALGANCICLOVIR
     Indication: CYTOMEGALOVIRUS INFECTION
     Route: 065

REACTIONS (3)
  - Respiratory disorder [Not Recovered/Not Resolved]
  - Cough [Not Recovered/Not Resolved]
  - Pyrexia [Recovered/Resolved]
